FAERS Safety Report 6157186-0 (Version None)
Quarter: 2009Q2

REPORT INFORMATION
  Report Type: 
  Country: None (occurrence: None)
  Receive Date: 20090413
  Receipt Date: 20090330
  Transmission Date: 20091009
  Serious: Yes (Other)
  Sender: FDA-Public Use
  Company Number: 8044615

PATIENT
  Age: 20 Year
  Sex: Male

DRUGS (3)
  1. KEPPRA [Suspect]
     Indication: EPILEPSY
     Dosage: 1000 MG / A FEW YEARS
  2. KEPPRA [Suspect]
     Indication: EPILEPSY
     Dosage: 1500 MG / A FEW YEARS
  3. VALPROIC ACID [Concomitant]

REACTIONS (2)
  - ELECTROCARDIOGRAM ST SEGMENT DEPRESSION [None]
  - ELECTROCARDIOGRAM T WAVE INVERSION [None]
